FAERS Safety Report 9226247 (Version 1)
Quarter: 2013Q2

REPORT INFORMATION
  Report Type: Other
  Country: DK (occurrence: DK)
  Receive Date: 20130411
  Receipt Date: 20130411
  Transmission Date: 20140414
  Serious: Yes (Hospitalization)
  Sender: FDA-Public Use
  Company Number: DK-ACTAVIS-2013-06395

PATIENT
  Sex: Female

DRUGS (2)
  1. PACLITAXEL (UNKNOWN) [Suspect]
     Indication: UTERINE CANCER
     Dosage: UNK
     Route: 065
     Dates: start: 20110209, end: 20110525
  2. CARBOPLATIN (UNKNOWN) [Suspect]
     Indication: UTERINE CANCER
     Dosage: UNK
     Route: 065
     Dates: start: 20110209, end: 20110525

REACTIONS (14)
  - Neuritis [Not Recovered/Not Resolved]
  - Sensory disturbance [Not Recovered/Not Resolved]
  - Myalgia [Not Recovered/Not Resolved]
  - Hypersensitivity [Not Recovered/Not Resolved]
  - Arthralgia [Not Recovered/Not Resolved]
  - Infection [Not Recovered/Not Resolved]
  - Back pain [Not Recovered/Not Resolved]
  - Dyspnoea [Not Recovered/Not Resolved]
  - Pain in extremity [Not Recovered/Not Resolved]
  - Pyrexia [Not Recovered/Not Resolved]
  - Malaise [Not Recovered/Not Resolved]
  - Pruritus [Not Recovered/Not Resolved]
  - Abdominal pain [Not Recovered/Not Resolved]
  - Headache [Not Recovered/Not Resolved]
